FAERS Safety Report 16182283 (Version 1)
Quarter: 2019Q2

REPORT INFORMATION
  Report Type: Spontaneous
  Country: ES (occurrence: ES)
  Receive Date: 20190410
  Receipt Date: 20190410
  Transmission Date: 20190711
  Serious: Yes (Hospitalization, Other)
  Sender: FDA-Public Use
  Company Number: ES-MYLANLABS-2019M1032403

PATIENT
  Age: 62 Year
  Sex: Female

DRUGS (1)
  1. CAPTOPRIL. [Suspect]
     Active Substance: CAPTOPRIL
     Indication: HYPERTENSION
     Dosage: 50 MILLIGRAM
     Route: 065

REACTIONS (3)
  - Hypotension [Recovering/Resolving]
  - Renal impairment [Recovered/Resolved]
  - Bradyphrenia [Unknown]

NARRATIVE: CASE EVENT DATE: 2013
